FAERS Safety Report 7486625-8 (Version None)
Quarter: 2011Q2

REPORT INFORMATION
  Report Type: 
  Country: None (occurrence: None)
  Receive Date: 20110517
  Receipt Date: 20100922
  Transmission Date: 20111010
  Serious: No
  Sender: FDA-Public Use
  Company Number: US-NOVEN-ALL1-2010-05018

PATIENT
  Sex: Female
  Weight: 20.408 kg

DRUGS (3)
  1. DAYTRANA [Suspect]
     Dosage: 20 MG, 1X/DAY:QD
     Route: 062
     Dates: start: 20100821, end: 20100821
  2. DAYTRANA [Suspect]
     Dosage: UNK MG, 1X/DAY:QD (1/2 20 MG PATCH)
     Route: 062
     Dates: start: 20100822, end: 20100917
  3. DAYTRANA [Suspect]
     Dosage: 15 MG, 1X/DAY:QD
     Route: 062
     Dates: start: 20100918

REACTIONS (6)
  - SOMNOLENCE [None]
  - DRUG PRESCRIBING ERROR [None]
  - HEADACHE [None]
  - WRONG TECHNIQUE IN DRUG USAGE PROCESS [None]
  - PRODUCT QUALITY ISSUE [None]
  - APPLICATION SITE ERYTHEMA [None]
